FAERS Safety Report 8327580-8 (Version None)
Quarter: 2012Q2

REPORT INFORMATION
  Report Type: 
  Country: None (occurrence: None)
  Receive Date: 20120502
  Receipt Date: 20120423
  Transmission Date: 20120825
  Serious: Yes (Other)
  Sender: FDA-Public Use
  Company Number: US-BAYER-2011-107523

PATIENT
  Age: 28 Year
  Sex: Female
  Weight: 68.027 kg

DRUGS (10)
  1. YAZ [Suspect]
     Dosage: UNK
     Route: 048
     Dates: start: 20090801, end: 20091101
  2. DROSPIRENONE AND ETHINYL ESTRADIOL [Suspect]
     Indication: ACNE
     Dosage: UNK
     Route: 048
     Dates: start: 20040101, end: 20090101
  3. PREDNISONE [Concomitant]
     Route: 047
  4. KETOCONAZOLE [Concomitant]
     Dosage: 200 MG, UNK
     Dates: start: 20100114
  5. LAMISIL [Concomitant]
  6. ORTHO-NOVUM [Concomitant]
  7. YAZ [Suspect]
     Indication: ACNE
     Dosage: UNK
     Route: 048
     Dates: start: 20040101, end: 20090101
  8. YASMIN [Suspect]
     Indication: ACNE
     Dosage: UNK
     Route: 048
     Dates: start: 20040101, end: 20090101
  9. PRILOSEC [Concomitant]
  10. MIRENA [Concomitant]
     Dosage: UNK
     Dates: start: 20091023

REACTIONS (5)
  - PAIN [None]
  - BILIARY DYSKINESIA [None]
  - INJURY [None]
  - CHOLECYSTITIS CHRONIC [None]
  - GALLBLADDER DISORDER [None]
